FAERS Safety Report 5133208-0 (Version None)
Quarter: 2006Q4

REPORT INFORMATION
  Report Type: 
  Country: None (occurrence: None)
  Receive Date: 20061018
  Receipt Date: 20061009
  Transmission Date: 20070319
  Serious: Yes (Other)
  Sender: FDA-Public Use
  Company Number: 14958

PATIENT
  Age: 57 Year
  Sex: Female

DRUGS (1)
  1. PAMIDRONATE DISODIUM [Suspect]
     Indication: METASTASES TO BONE
     Dosage: 60 MG MONTHLY IV
     Route: 042
     Dates: start: 20010309, end: 20050801

REACTIONS (2)
  - DEVICE RELATED INFECTION [None]
  - TOOTH INFECTION [None]
